FAERS Safety Report 16629869 (Version 1)
Quarter: 2019Q3

REPORT INFORMATION
  Report Type: Spontaneous
  Country: US (occurrence: US)
  Receive Date: 20190725
  Receipt Date: 20190725
  Transmission Date: 20191004
  Serious: No
  Sender: FDA-Public Use
  Company Number: US-009507513-1907USA012861

PATIENT
  Age: 24 Year
  Sex: Female
  Weight: 75.74 kg

DRUGS (5)
  1. ZOLOFT [Concomitant]
     Active Substance: SERTRALINE HYDROCHLORIDE
  2. NEXPLANON [Suspect]
     Active Substance: ETONOGESTREL
     Indication: CONTRACEPTION
     Dosage: ONE ROD EVERY 3 YEARS
     Route: 059
     Dates: start: 20170915
  3. AZELAIC ACID. [Concomitant]
     Active Substance: AZELAIC ACID
  4. MIRENA [Concomitant]
     Active Substance: LEVONORGESTREL
  5. SODIUM SULFATE [Concomitant]
     Active Substance: SODIUM SULFATE

REACTIONS (3)
  - Complication of device removal [Not Recovered/Not Resolved]
  - Complication of device removal [Not Recovered/Not Resolved]
  - Vaginal haemorrhage [Not Recovered/Not Resolved]

NARRATIVE: CASE EVENT DATE: 20181030
